FAERS Safety Report 24446003 (Version 1)
Quarter: 2024Q4

REPORT INFORMATION
  Report Type: Spontaneous
  Country: LK (occurrence: LK)
  Receive Date: 20241016
  Receipt Date: 20241016
  Transmission Date: 20250115
  Serious: Yes (Other)
  Sender: OXFORD PHARMACEUTICALS, LLC
  Company Number: LK-Oxford Pharmaceuticals, LLC-2163136

PATIENT
  Age: 11 Month
  Sex: Female

DRUGS (5)
  1. LEVETIRACETAM [Suspect]
     Active Substance: LEVETIRACETAM
     Indication: Seizure
  2. PREDNISOLONE [Suspect]
     Active Substance: PREDNISOLONE
  3. CLOBAZAM [Suspect]
     Active Substance: CLOBAZAM
  4. VALPROATE SODIUM [Suspect]
     Active Substance: VALPROATE SODIUM
  5. VIGABATRIN [Suspect]
     Active Substance: VIGABATRIN

REACTIONS (1)
  - Therapy partial responder [Unknown]
